FAERS Safety Report 7585304-6 (Version None)
Quarter: 2011Q2

REPORT INFORMATION
  Report Type: 
  Country: None (occurrence: None)
  Receive Date: 20110623
  Receipt Date: 20080124
  Transmission Date: 20111010
  Serious: No
  Sender: FDA-Public Use
  Company Number: PI-02253

PATIENT
  Age: 64 Year
  Sex: Male

DRUGS (1)
  1. CHLORAPREP WITH TINT [Suspect]
     Indication: PREOPERATIVE CARE
     Dosage: ONCE, TOPICAL
     Route: 061
     Dates: start: 20080114

REACTIONS (2)
  - WRONG TECHNIQUE IN DRUG USAGE PROCESS [None]
  - NO ADVERSE EVENT [None]
